FAERS Safety Report 5359338-6 (Version None)
Quarter: 2007Q2

REPORT INFORMATION
  Report Type: 
  Country: None (occurrence: None)
  Receive Date: 20070615
  Receipt Date: 20070605
  Transmission Date: 20071010
  Serious: Yes (Death, Other)
  Sender: FDA-Public Use
  Company Number: US-BOEHRINGER INGELHEIM PHARMACEUTICALS, INC.-2007-DE-00085GD

PATIENT
  Age: 41 Year
  Sex: Male

DRUGS (4)
  1. NEVIRAPINE [Suspect]
     Indication: HIV INFECTION
  2. NEVIRAPINE [Suspect]
  3. ABACAVIR [Concomitant]
     Indication: HIV INFECTION
  4. LAMIVUDINE [Concomitant]
     Indication: HIV INFECTION

REACTIONS (4)
  - ABDOMINAL PAIN [None]
  - HODGKIN'S DISEASE [None]
  - JAUNDICE [None]
  - VANISHING BILE DUCT SYNDROME [None]
